FAERS Safety Report 6836901-4 (Version None)
Quarter: 2010Q3

REPORT INFORMATION
  Report Type: 
  Country: None (occurrence: None)
  Receive Date: 20100713
  Receipt Date: 20070507
  Transmission Date: 20110219
  Serious: Yes (Other)
  Sender: FDA-Public Use
  Company Number: US-PFIZER INC-2007036208

PATIENT
  Sex: Female

DRUGS (4)
  1. CHANTIX [Suspect]
     Indication: SMOKING CESSATION THERAPY
     Route: 048
     Dates: start: 20070421, end: 20070429
  2. PREDNISONE [Suspect]
     Indication: ASTHMA
  3. COMBIVENT [Concomitant]
     Route: 055
  4. DIAZEPAM [Concomitant]

REACTIONS (10)
  - ASTHENIA [None]
  - BACK PAIN [None]
  - BEDRIDDEN [None]
  - EMOTIONAL DISORDER [None]
  - MALAISE [None]
  - NERVOUSNESS [None]
  - PYREXIA [None]
  - SOMNOLENCE [None]
  - SYMPTOM MASKED [None]
  - VAGINAL HAEMORRHAGE [None]
